FAERS Safety Report 9319845 (Version 6)
Quarter: 2016Q3

REPORT INFORMATION
  Report Type: Report from Study
  Country: US (occurrence: US)
  Receive Date: 20130530
  Receipt Date: 20160811
  Transmission Date: 20161109
  Serious: Yes (Death, Life-Threatening, Hospitalization, Other)
  Sender: FDA-Public Use
  Company Number: US-BRISTOL-MYERS SQUIBB COMPANY-18744086

PATIENT
  Age: 11 Year
  Sex: Female
  Weight: 44.44 kg

DRUGS (7)
  1. EXTERNAL-PEGASPARGASE [Suspect]
     Active Substance: PEGASPARGASE
     Indication: ACUTE LYMPHOCYTIC LEUKAEMIA
     Dosage: UNK
     Route: 065
     Dates: start: 20130514, end: 20130515
  2. EXTERNAL-HYDROCORTISONE [Suspect]
     Active Substance: HYDROCORTISONE
     Indication: ACUTE LYMPHOCYTIC LEUKAEMIA
     Dosage: UNK
     Route: 065
     Dates: start: 20130513, end: 20130513
  3. ETOPOSIDE. [Suspect]
     Active Substance: ETOPOSIDE
     Indication: ACUTE LYMPHOCYTIC LEUKAEMIA
     Dosage: UNK
     Route: 065
     Dates: start: 20130511, end: 20130513
  4. EXTERNAL-CYTARABINE [Suspect]
     Active Substance: CYTARABINE
     Indication: ACUTE LYMPHOCYTIC LEUKAEMIA
     Dosage: 10MAY2013 TO 11MAY2013  13MAY-13MAY2013
     Route: 065
     Dates: start: 20130510, end: 20130513
  5. EXTERNAL-METHOTREXATE SODIUM [Suspect]
     Active Substance: METHOTREXATE SODIUM
     Indication: ACUTE LYMPHOCYTIC LEUKAEMIA
     Dosage: UNK
     Route: 065
     Dates: start: 20130513, end: 20130513
  6. EXTERNAL-DEXAMETHASONE [Suspect]
     Active Substance: DEXAMETHASONE
     Indication: ACUTE LYMPHOCYTIC LEUKAEMIA
     Dosage: UNK
     Route: 065
     Dates: start: 20130509, end: 20130513
  7. DASATINIB [Suspect]
     Active Substance: DASATINIB
     Indication: ACUTE LYMPHOCYTIC LEUKAEMIA
     Dosage: 1DF=80(UNITS NOS)  18DEC-20DEC12-80  21DEC12-8JAN13=0  9JAN13-:80UNITS NOS
     Route: 048
     Dates: start: 20121218

REACTIONS (3)
  - Sepsis [Fatal]
  - Cellulitis [Recovered/Resolved]
  - Dehydration [Recovered/Resolved]

NARRATIVE: CASE EVENT DATE: 20130401
